FAERS Safety Report 5696123-X (Version None)
Quarter: 2008Q2

REPORT INFORMATION
  Report Type: 
  Country: None (occurrence: None)
  Receive Date: 20080407
  Receipt Date: 20080328
  Transmission Date: 20081010
  Serious: Yes (Other)
  Sender: FDA-Public Use
  Company Number: US-ABBOTT-08P-163-0444465-00

PATIENT
  Sex: Female
  Weight: 93.07 kg

DRUGS (4)
  1. HUMIRA [Suspect]
     Indication: RHEUMATOID ARTHRITIS
     Route: 058
     Dates: end: 20070101
  2. CELECOXIB [Concomitant]
     Indication: RHEUMATOID ARTHRITIS
     Route: 048
  3. SERETIDE [Concomitant]
     Indication: ASTHMA
     Route: 055
  4. COMBIVENT [Concomitant]
     Indication: ASTHMA
     Route: 055

REACTIONS (2)
  - DRUG INEFFECTIVE [None]
  - PARKINSON'S DISEASE [None]
